FAERS Safety Report 4270632-2 (Version None)
Quarter: 2004Q1

REPORT INFORMATION
  Report Type: 
  Country: None (occurrence: None)
  Receive Date: 20040114
  Receipt Date: 20031113
  Transmission Date: 20041129
  Serious: Yes (Hospitalization)
  Sender: FDA-Public Use
  Company Number: PHHO2003CO14635

PATIENT
  Age: 74 Year
  Sex: Male

DRUGS (5)
  1. TRILEPTAL [Suspect]
     Indication: DIABETIC NEUROPATHY
     Dosage: 300 MG, BID
     Route: 048
     Dates: start: 20031026, end: 20031026
  2. INSULIN [Concomitant]
  3. ENALAPRIL [Concomitant]
     Indication: HYPERTENSION
  4. COUMADIN [Concomitant]
  5. HYDROCHLOROTHIAZIDE [Concomitant]

REACTIONS (5)
  - HYPERHIDROSIS [None]
  - JOINT INJURY [None]
  - LOSS OF CONSCIOUSNESS [None]
  - OEDEMA PERIPHERAL [None]
  - SYNCOPE [None]
